FAERS Safety Report 4820652-1 (Version None)
Quarter: 2005Q4

REPORT INFORMATION
  Report Type: 
  Country: None (occurrence: None)
  Receive Date: 20051014
  Receipt Date: 20050630
  Transmission Date: 20060501
  Serious: No
  Sender: FDA-Public Use
  Company Number: 2005SP001693

PATIENT
  Age: 45 Year
  Sex: Female
  Weight: 88.905 kg

DRUGS (7)
  1. LUNESTA [Suspect]
     Indication: INSOMNIA
     Dosage: 2 MG; HS; ORAL; 2 MG; X1; ORAL; 3 MG; HS; ORAL
     Route: 048
     Dates: start: 20050629, end: 20050629
  2. LUNESTA [Suspect]
     Indication: INSOMNIA
     Dosage: 2 MG; HS; ORAL; 2 MG; X1; ORAL; 3 MG; HS; ORAL
     Route: 048
     Dates: start: 20050630, end: 20050630
  3. LUNESTA [Suspect]
     Indication: INSOMNIA
     Dosage: 2 MG; HS; ORAL; 2 MG; X1; ORAL; 3 MG; HS; ORAL
     Route: 048
     Dates: start: 20050630
  4. IBUPROFEN [Concomitant]
  5. HYDROXYZINE PAMOATE [Concomitant]
  6. VALIUM [Concomitant]
  7. CYMBALTA [Concomitant]

REACTIONS (3)
  - DRUG INEFFECTIVE [None]
  - MALAISE [None]
  - MIDDLE INSOMNIA [None]
